FAERS Safety Report 4301019-1 (Version None)
Quarter: 2004Q1

REPORT INFORMATION
  Report Type: 
  Country: None (occurrence: None)
  Receive Date: 20040219
  Receipt Date: 20040204
  Transmission Date: 20041129
  Serious: Yes (Hospitalization, Other)
  Sender: FDA-Public Use
  Company Number: 2004IM000300

PATIENT
  Age: 34 Year
  Sex: Male

DRUGS (1)
  1. ADVAFERON (A643_INTERFERNO ALFACON-1) [Suspect]
     Indication: HEPATITIS C
     Dosage: 18 MU; QD; SUBCUTANEOUS
     Route: 058
     Dates: start: 20020313, end: 20020805

REACTIONS (4)
  - AGGRESSION [None]
  - ANOREXIA [None]
  - DIET REFUSAL [None]
  - REFUSAL OF TREATMENT BY PATIENT [None]
